FAERS Safety Report 8012785-6 (Version None)
Quarter: 2011Q4

REPORT INFORMATION
  Report Type: 
  Country: None (occurrence: None)
  Receive Date: 20111229
  Receipt Date: 20111220
  Transmission Date: 20120403
  Serious: Yes (Death, Other)
  Sender: FDA-Public Use
  Company Number: CH-CELGENEUS-151-21880-11102411

PATIENT
  Sex: Male

DRUGS (4)
  1. REVLIMID [Suspect]
     Dosage: 25 MILLIGRAM
     Route: 048
     Dates: start: 20111005
  2. REVLIMID [Suspect]
     Dosage: 15 MILLIGRAM
     Route: 048
     Dates: start: 20111101
  3. PREDNISONE TAB [Concomitant]
     Dosage: 10 MILLIGRAM
     Route: 065
     Dates: start: 20110801
  4. VALACICLOVIR [Concomitant]
     Dosage: 500 MILLIGRAM
     Route: 065
     Dates: start: 20110101

REACTIONS (3)
  - LEUKOPENIA [None]
  - DEATH [None]
  - THROMBOCYTOPENIA [None]
